APPROVED DRUG PRODUCT: PERPHENAZINE
Active Ingredient: PERPHENAZINE
Strength: 2MG
Dosage Form/Route: TABLET;ORAL
Application: A210163 | Product #001 | TE Code: AB
Applicant: APPCO PHARMA LLC
Approved: May 18, 2022 | RLD: No | RS: No | Type: RX